FAERS Safety Report 4745090-1 (Version None)
Quarter: 2005Q3

REPORT INFORMATION
  Report Type: 
  Country: None (occurrence: None)
  Receive Date: 20050815
  Receipt Date: 20050705
  Transmission Date: 20060218
  Serious: Yes (Other)
  Sender: FDA-Public Use
  Company Number: US-ROCHE-409835

PATIENT
  Age: 69 Year
  Sex: Male
  Weight: 101.2 kg

DRUGS (8)
  1. PEG-INTERFERON ALFA 2A (RO 25-8310) [Suspect]
     Route: 058
     Dates: start: 20041022, end: 20050307
  2. PEG-INTERFERON ALFA 2A (RO 25-8310) [Suspect]
     Route: 058
     Dates: start: 20050323, end: 20050331
  3. RIBAVIRIN [Suspect]
     Route: 048
     Dates: start: 20041022, end: 20050307
  4. RIBAVIRIN [Suspect]
     Route: 048
     Dates: start: 20050323, end: 20050331
  5. ALTACE [Concomitant]
     Route: 048
  6. ACTOS [Concomitant]
     Route: 048
     Dates: start: 20040129
  7. LASIX [Concomitant]
     Route: 048
  8. ANTIASTHMATICS [Concomitant]
     Route: 055

REACTIONS (3)
  - ANAEMIA [None]
  - CARDIAC FAILURE CONGESTIVE [None]
  - TRICUSPID VALVE INCOMPETENCE [None]
